FAERS Safety Report 10277744 (Version 2)
Quarter: 2014Q3

REPORT INFORMATION
  Report Type: Not Available
  Country: CA (occurrence: CA)
  Receive Date: 20140704
  Receipt Date: 20140721
  Transmission Date: 20150326
  Serious: Yes (Other)
  Sender: FDA-Public Use
  Company Number: CA-BEH-2014043527

PATIENT
  Age: 11 Month
  Sex: Female
  Weight: 13 kg

DRUGS (1)
  1. PRIVIGEN [Suspect]
     Active Substance: HUMAN IMMUNOGLOBULIN G
     Route: 042

REACTIONS (2)
  - Haptoglobin decreased [Unknown]
  - Haemoglobin decreased [Unknown]
